FAERS Safety Report 25859674 (Version 1)
Quarter: 2025Q3

REPORT INFORMATION
  Report Type: Spontaneous
  Country: JP (occurrence: JP)
  Receive Date: 20250929
  Receipt Date: 20250929
  Transmission Date: 20251020
  Serious: Yes (Other)
  Sender: AMGEN
  Company Number: JP-AMGEN-JPNSP2025191337

PATIENT
  Age: 83 Year
  Sex: Female

DRUGS (2)
  1. BEVACIZUMAB [Suspect]
     Active Substance: BEVACIZUMAB
     Indication: Ovarian cancer stage III
     Route: 065
  2. OLAPARIB [Concomitant]
     Active Substance: OLAPARIB

REACTIONS (2)
  - Acute myeloid leukaemia [Unknown]
  - Ovarian cancer [Unknown]
